FAERS Safety Report 5059956-9 (Version None)
Quarter: 2006Q3

REPORT INFORMATION
  Report Type: 
  Country: None (occurrence: None)
  Receive Date: 20060724
  Receipt Date: 20060714
  Transmission Date: 20061208
  Serious: Yes (Other)
  Sender: FDA-Public Use
  Company Number: 2006AP03321

PATIENT
  Age: 84 Year
  Sex: Female

DRUGS (1)
  1. OMEPRAL [Suspect]
     Route: 048
     Dates: start: 20020101

REACTIONS (3)
  - CATARACT [None]
  - GLAUCOMA [None]
  - VISUAL DISTURBANCE [None]
